FAERS Safety Report 13841382 (Version 1)
Quarter: 2017Q3

REPORT INFORMATION
  Report Type: Spontaneous
  Country: GB (occurrence: GB)
  Receive Date: 20170807
  Receipt Date: 20170807
  Transmission Date: 20171127
  Serious: Yes (Other)
  Sender: FDA-Public Use
  Company Number: GB-CANTON LABORATORIES, LLC-2024297

PATIENT
  Age: 20 Year
  Sex: Female
  Weight: 79 kg

DRUGS (8)
  1. LANSOPRAZOLE. [Concomitant]
     Active Substance: LANSOPRAZOLE
     Route: 065
     Dates: start: 20170705
  2. CLENIL MODULITE (BECLOMETHASONE DIPROPIONAT) [Concomitant]
     Route: 055
     Dates: start: 20170327
  3. VENLAFAXINE [Concomitant]
     Active Substance: VENLAFAXINE HYDROCHLORIDE
     Route: 065
     Dates: start: 20170327, end: 20170707
  4. VENTOLIN HFA [Concomitant]
     Active Substance: ALBUTEROL SULFATE
     Route: 055
     Dates: start: 20170327
  5. NAPROSYN [Suspect]
     Active Substance: NAPROXEN
     Indication: PRODUCT USED FOR UNKNOWN INDICATION
     Route: 065
     Dates: start: 20170707
  6. VENLALIC XL (VENLAFAXINE HYDROCHLORIDE) [Concomitant]
     Route: 065
     Dates: start: 20170707
  7. DESOGESTREL [Concomitant]
     Active Substance: DESOGESTREL
     Route: 065
     Dates: start: 20170621
  8. NORIDAY (NORETHISTERONE) [Concomitant]
     Route: 065
     Dates: start: 20170707

REACTIONS (1)
  - Peripheral swelling [Recovering/Resolving]

NARRATIVE: CASE EVENT DATE: 20170707
